FAERS Safety Report 18980241 (Version 1)
Quarter: 2021Q1

REPORT INFORMATION
  Report Type: Spontaneous
  Country: US (occurrence: US)
  Receive Date: 20210306
  Receipt Date: 20210306
  Transmission Date: 20210420
  Serious: Yes (Hospitalization, Disabling)
  Sender: FDA-Public Use
  Company Number: None

PATIENT
  Age: 46 Year
  Sex: Male
  Weight: 72 kg

DRUGS (3)
  1. WRIST AND KNEE BRACES [Concomitant]
  2. CIPROFLOXACIN. [Suspect]
     Active Substance: CIPROFLOXACIN
     Indication: TOOTH INFECTION
  3. ARM SLING [Concomitant]

REACTIONS (13)
  - Arthralgia [None]
  - Insomnia [None]
  - Fatigue [None]
  - Neuropathy peripheral [None]
  - Feeling abnormal [None]
  - Toxicity to various agents [None]
  - Depression [None]
  - Tendon pain [None]
  - Adhesion [None]
  - Tendon rupture [None]
  - Paralysis [None]
  - Muscular weakness [None]
  - Chest pain [None]

NARRATIVE: CASE EVENT DATE: 20130801
